FAERS Safety Report 13762655 (Version 2)
Quarter: 2017Q3

REPORT INFORMATION
  Report Type: Report from Study
  Country: BE (occurrence: BE)
  Receive Date: 20170718
  Receipt Date: 20170813
  Transmission Date: 20171127
  Serious: Yes (Other)
  Sender: FDA-Public Use
  Company Number: PHHY2017BE102453

PATIENT
  Age: 57 Year
  Sex: Male

DRUGS (1)
  1. COSENTYX [Suspect]
     Active Substance: SECUKINUMAB
     Indication: RHEUMATIC DISORDER
     Dosage: 300 MG (2 INJECTIONS), UNK
     Route: 058
     Dates: start: 20170710

REACTIONS (3)
  - Hypoaesthesia [Unknown]
  - Incorrect dose administered [Not Recovered/Not Resolved]
  - Product use in unapproved indication [Not Recovered/Not Resolved]

NARRATIVE: CASE EVENT DATE: 20170710
